FAERS Safety Report 9604422 (Version 1)
Quarter: 2013Q4

REPORT INFORMATION
  Report Type: Spontaneous
  Country: JP (occurrence: JP)
  Receive Date: 20131008
  Receipt Date: 20131008
  Transmission Date: 20140711
  Serious: Yes (Hospitalization)
  Sender: FDA-Public Use
  Company Number: JP-TEVA-435756ISR

PATIENT
  Age: 26 Year
  Sex: Male
  Weight: 64 kg

DRUGS (7)
  1. MUCOSTA [Concomitant]
  2. TRISENOX [Suspect]
     Indication: ACUTE PROMYELOCYTIC LEUKAEMIA
     Dosage: .15 MILLIGRAM DAILY;
     Route: 042
     Dates: start: 20130730, end: 20130803
  3. TRISENOX [Suspect]
     Dates: start: 20130806, end: 20130810
  4. TRISENOX [Suspect]
     Dates: start: 20130813, end: 20130817
  5. TRISENOX [Suspect]
     Dates: start: 20130827, end: 20130830
  6. TRISENOX [Suspect]
     Dates: start: 20130903, end: 20130907
  7. BIO-THREE [Concomitant]

REACTIONS (1)
  - Blood fibrinogen decreased [Not Recovered/Not Resolved]
